FAERS Safety Report 5131802-4 (Version None)
Quarter: 2006Q4

REPORT INFORMATION
  Report Type: 
  Country: None (occurrence: None)
  Receive Date: 20061016
  Receipt Date: 20061004
  Transmission Date: 20070319
  Serious: Yes (Other)
  Sender: FDA-Public Use
  Company Number: 2006106010

PATIENT
  Age: 39 Year
  Sex: Male

DRUGS (4)
  1. LOPID [Suspect]
     Indication: BLOOD TRIGLYCERIDES INCREASED
     Dosage: 900 MG, ORAL
     Route: 048
     Dates: end: 20060901
  2. AMOXICILLIN [Suspect]
     Indication: DRUG USE FOR UNKNOWN INDICATION
     Dates: end: 20060829
  3. ATENOLOL [Concomitant]
  4. HYDROCHOROTHIAZIDE (HYDROCHLOROTHIAZIDE) [Concomitant]

REACTIONS (2)
  - HEPATIC STEATOSIS [None]
  - PRURITUS GENERALISED [None]
